FAERS Safety Report 10423570 (Version 2)
Quarter: 2014Q3

REPORT INFORMATION
  Report Type: Spontaneous
  Country: US (occurrence: US)
  Receive Date: 20140902
  Receipt Date: 20140902
  Transmission Date: 20150326
  Serious: Yes (Hospitalization, Other)
  Sender: FDA-Public Use
  Company Number: US-009507513-2010SP050733

PATIENT
  Sex: Female
  Weight: 96.62 kg

DRUGS (1)
  1. NUVARING [Suspect]
     Active Substance: ETHINYL ESTRADIOL\ETONOGESTREL
     Indication: CONTRACEPTION
     Dates: start: 200602, end: 20060512

REACTIONS (6)
  - Migraine [Not Recovered/Not Resolved]
  - Pulmonary embolism [Unknown]
  - Thrombosis [Unknown]
  - Depression [Not Recovered/Not Resolved]
  - Sleep apnoea syndrome [Unknown]
  - Weight increased [Not Recovered/Not Resolved]

NARRATIVE: CASE EVENT DATE: 200603
